FAERS Safety Report 9818933 (Version 1)
Quarter: 2014Q1

REPORT INFORMATION
  Report Type: Spontaneous
  Country: US (occurrence: None)
  Receive Date: 20140114
  Receipt Date: 20140114
  Transmission Date: 20141002
  Serious: Yes (Hospitalization)
  Sender: FDA-Public Use
  Company Number: None

PATIENT
  Age: 9 Year
  Sex: Male
  Weight: 43.8 kg

DRUGS (3)
  1. MERCAPTOPURINE [Suspect]
     Dates: end: 20131231
  2. METHOTREXATE [Suspect]
     Dates: end: 20131226
  3. PREDNISONE [Suspect]
     Dates: end: 20131223

REACTIONS (3)
  - Pyrexia [None]
  - Neutropenia [None]
  - Interstitial lung disease [None]
